FAERS Safety Report 8612980-9 (Version None)
Quarter: 2012Q3

REPORT INFORMATION
  Report Type: 
  Country: None (occurrence: None)
  Receive Date: 20120822
  Receipt Date: 20120814
  Transmission Date: 20120928
  Serious: Yes (Death, Other)
  Sender: FDA-Public Use
  Company Number: US-BAYER-2012-085620

PATIENT
  Age: 76 Year
  Sex: Female

DRUGS (16)
  1. TRASYLOL [Suspect]
     Indication: AORTIC VALVE REPLACEMENT
     Dosage: 100 ML, UNK
     Dates: start: 20000426
  2. FENTANYL [Concomitant]
     Dosage: 1250 MCG
     Route: 042
     Dates: start: 20000426
  3. TRASYLOL [Suspect]
     Dosage: 25 ML/HR INFUSION
     Dates: start: 20000426
  4. LANOXIN [Concomitant]
     Dosage: 0.125 MG, DAILY
     Route: 048
  5. CONTRAST MEDIA [Concomitant]
     Indication: CATHETERISATION CARDIAC
  6. AMIODARONE HCL [Concomitant]
     Dosage: UNK
     Route: 042
     Dates: start: 20000426
  7. VECURONIUM BROMIDE [Concomitant]
     Dosage: 10 MG, UNK
     Route: 042
     Dates: start: 20000426
  8. ZINACEF [Concomitant]
     Dosage: 1.5 G, UNK
     Route: 042
     Dates: start: 20000426
  9. SOLU-MEDROL [Concomitant]
     Dosage: 1 G, UNK
     Route: 042
     Dates: start: 20000426
  10. HEPARIN [Concomitant]
     Dosage: 15000 U, UNK
     Route: 042
     Dates: start: 20000426
  11. PHENYLEPHRINE HCL [Concomitant]
     Dosage: UNK
     Route: 042
     Dates: start: 20000426
  12. MIDAZOLAM [Concomitant]
     Dosage: 10 MG, UNK
     Route: 042
     Dates: start: 20000426
  13. PROTAMINE SULFATE [Concomitant]
     Dosage: 150 MG, UNK
     Route: 042
     Dates: start: 20000426
  14. HYZAAR [Concomitant]
     Dosage: 12.5 MG, DAILY
     Route: 048
  15. LASIX [Concomitant]
     Dosage: 40 MG, BID
     Route: 048
  16. NITROGLYCERIN [Concomitant]
     Dosage: UNK
     Route: 042
     Dates: start: 20000426

REACTIONS (4)
  - DEATH [None]
  - RENAL FAILURE ACUTE [None]
  - CARDIAC FAILURE CONGESTIVE [None]
  - HYPERTENSIVE NEPHROPATHY [None]
